FAERS Safety Report 10689474 (Version 1)
Quarter: 2014Q4

REPORT INFORMATION
  Report Type: Spontaneous
  Country: AR (occurrence: None)
  Receive Date: 20141231
  Receipt Date: 20141231
  Transmission Date: 20150529
  Serious: Yes (Disabling, Other)
  Sender: FDA-Public Use
  Company Number: AR-2014VAL000286

PATIENT
  Age: 79 Year
  Sex: Female

DRUGS (1)
  1. PARLODEL [Suspect]
     Active Substance: BROMOCRIPTINE MESYLATE
     Indication: PITUITARY TUMOUR BENIGN
     Route: 048
     Dates: start: 1980, end: 201305

REACTIONS (15)
  - Blood growth hormone abnormal [None]
  - Anxiety [None]
  - Feeling of despair [None]
  - Nose deformity [None]
  - Fall [None]
  - Malaise [None]
  - Feeling abnormal [None]
  - Dysstasia [None]
  - Dentofacial anomaly [None]
  - Peripheral coldness [None]
  - Arthralgia [None]
  - Gait disturbance [None]
  - Abasia [None]
  - Walking aid user [None]
  - Death of relative [None]

NARRATIVE: CASE EVENT DATE: 2013
